FAERS Safety Report 18784339 (Version 3)
Quarter: 2021Q4

REPORT INFORMATION
  Report Type: Other
  Country: KR (occurrence: None)
  Receive Date: 20210125
  Receipt Date: 20211118
  Transmission Date: 20220303
  Serious: No
  Sender: FDA-Public Use
  Company Number: KR-ROCHE-2753013

PATIENT

DRUGS (7)
  1. BEVACIZUMAB [Suspect]
     Active Substance: BEVACIZUMAB
     Indication: Retinal haemorrhage
     Route: 050
  2. ALTEPLASE [Suspect]
     Active Substance: ALTEPLASE
     Indication: Retinal haemorrhage
     Dosage: 50 UG/0.05 ML
     Route: 050
  3. RANIBIZUMAB [Suspect]
     Active Substance: RANIBIZUMAB
     Indication: Retinal haemorrhage
     Route: 050
  4. AFLIBERCEPT [Suspect]
     Active Substance: AFLIBERCEPT
     Indication: Retinal haemorrhage
     Route: 065
  5. PHENYLEPHRINE HYDROCHLORIDE\TROPICAMIDE [Concomitant]
     Active Substance: PHENYLEPHRINE HYDROCHLORIDE\TROPICAMIDE
     Indication: Mydriasis
  6. ALCAINE [Concomitant]
     Active Substance: PROPARACAINE HYDROCHLORIDE
  7. POTADINE [Concomitant]

REACTIONS (3)
  - Vitreous haemorrhage [Unknown]
  - Intentional product use issue [Unknown]
  - Off label use [Unknown]
